FAERS Safety Report 6968173-4 (Version None)
Quarter: 2010Q3

REPORT INFORMATION
  Report Type: 
  Country: None (occurrence: None)
  Receive Date: 20100907
  Receipt Date: 20100902
  Transmission Date: 20110219
  Serious: No
  Sender: FDA-Public Use
  Company Number: US-TYCO HEALTHCARE/MALLINCKRODT-T201001873

PATIENT
  Sex: Female

DRUGS (1)
  1. MD-GASTROVIEW [Suspect]
     Indication: SCAN WITH CONTRAST
     Dosage: 20 ML, SINGLE
     Route: 048
     Dates: start: 20100819, end: 20100819

REACTIONS (1)
  - URTICARIA [None]
